FAERS Safety Report 22529036 (Version 6)
Quarter: 2023Q4

REPORT INFORMATION
  Report Type: Report from Study
  Country: CN (occurrence: None)
  Receive Date: 20230607
  Receipt Date: 20231013
  Transmission Date: 20240109
  Serious: Yes (Hospitalization)
  Sender: FDA-Public Use
  Company Number: CN-ROCHE-3360645

PATIENT
  Age: 9 Year
  Sex: Male
  Weight: 35 kg

DRUGS (2)
  1. RISDIPLAM [Suspect]
     Active Substance: RISDIPLAM
     Indication: Spinal muscular atrophy
     Dosage: 60MG/BOTTLE
     Route: 048
     Dates: start: 20180713
  2. RISDIPLAM [Suspect]
     Active Substance: RISDIPLAM
     Indication: Spinal muscular atrophy
     Dosage: 60MG/BOTTLE, LAST DOSE PRIOR TO SAE/AESI ON 21/MAY/2023, 28/JUN/2023
     Route: 048

REACTIONS (1)
  - Gastroenteritis [Not Recovered/Not Resolved]

NARRATIVE: CASE EVENT DATE: 20230522
